FAERS Safety Report 4430956-2 (Version None)
Quarter: 2004Q3

REPORT INFORMATION
  Report Type: 
  Country: None (occurrence: None)
  Receive Date: 20040824
  Receipt Date: 20040818
  Transmission Date: 20050211
  Serious: Yes (Death, Other)
  Sender: FDA-Public Use
  Company Number: PHBS2004VE10909

PATIENT
  Age: 56 Year
  Sex: Female

DRUGS (7)
  1. GLEEVEC [Suspect]
     Indication: ACUTE MYELOID LEUKAEMIA
     Dosage: 600 MG/DAY
     Route: 048
     Dates: start: 20040501, end: 20040701
  2. GLEEVEC [Suspect]
     Dosage: 400 MG/DAY
     Route: 048
  3. OMEPRAZOLE [Concomitant]
     Route: 042
  4. SUCRALFATE [Concomitant]
  5. IMIPENEM [Concomitant]
  6. IDARUBICIN HCL [Concomitant]
  7. CYTOSAR-U [Concomitant]

REACTIONS (8)
  - DISEASE PROGRESSION [None]
  - HAEMORRHAGE INTRACRANIAL [None]
  - INFECTION [None]
  - LEUKAEMIA RECURRENT [None]
  - NAUSEA [None]
  - STOMACH DISCOMFORT [None]
  - STRESS SYMPTOMS [None]
  - VOMITING [None]
